FAERS Safety Report 4769107-3 (Version None)
Quarter: 2005Q3

REPORT INFORMATION
  Report Type: 
  Country: None (occurrence: None)
  Receive Date: 20050913
  Receipt Date: 20050831
  Transmission Date: 20060218
  Serious: Yes (Hospitalization, Other)
  Sender: FDA-Public Use
  Company Number: 2005122830

PATIENT
  Age: 29 Year
  Sex: Female

DRUGS (5)
  1. PHENYTOIN SODIUM [Suspect]
     Indication: EPILEPSY
     Dosage: 1.5 G LOADING DOSE
  2. CARBAMAZEPINE [Suspect]
     Indication: EPILEPSY
  3. VIGABATRIN (VIGABATRIN) [Suspect]
     Indication: EPILEPSY
  4. VALPROIC ACID [Suspect]
     Indication: EPILEPSY
  5. FOLIC ACID [Concomitant]

REACTIONS (6)
  - AMBLYOPIA [None]
  - CAESAREAN SECTION [None]
  - DRUG EXPOSURE DURING PREGNANCY [None]
  - DRUG RESISTANCE [None]
  - ECTROPION [None]
  - STATUS EPILEPTICUS [None]
